FAERS Safety Report 23575161 (Version 8)
Quarter: 2025Q2

REPORT INFORMATION
  Report Type: Spontaneous
  Country: US (occurrence: US)
  Receive Date: 20240228
  Receipt Date: 20250420
  Transmission Date: 20250717
  Serious: Yes (Hospitalization, Other)
  Sender: SANOFI AVENTIS
  Company Number: US-SA-SAC20240222000149

PATIENT
  Age: 19 Year
  Sex: Male

DRUGS (6)
  1. ALPROLIX [Suspect]
     Active Substance: EFTRENONACOG ALFA
     Indication: Factor IX deficiency
     Dosage: 3000 U, QW
     Route: 042
     Dates: start: 202302
  2. ALPROLIX [Suspect]
     Active Substance: EFTRENONACOG ALFA
     Indication: Factor IX deficiency
     Dosage: 3000 U, QW
     Route: 042
     Dates: start: 202302
  3. ALPROLIX [Suspect]
     Active Substance: EFTRENONACOG ALFA
     Route: 042
     Dates: start: 202302
  4. ALPROLIX [Suspect]
     Active Substance: EFTRENONACOG ALFA
     Route: 042
     Dates: start: 202302
  5. ALPROLIX [Suspect]
     Active Substance: EFTRENONACOG ALFA
     Dosage: 3000 U, QW
     Route: 042
     Dates: start: 202402
  6. ALPROLIX [Suspect]
     Active Substance: EFTRENONACOG ALFA
     Dosage: 3000 U, QW
     Route: 042
     Dates: start: 202402

REACTIONS (8)
  - Road traffic accident [Unknown]
  - Jaw fracture [Unknown]
  - Haemarthrosis [Not Recovered/Not Resolved]
  - Haemorrhage [Unknown]
  - Haemorrhage [Not Recovered/Not Resolved]
  - Haemorrhage [Unknown]
  - Weight decreased [Unknown]
  - Haemorrhage [Recovered/Resolved]

NARRATIVE: CASE EVENT DATE: 20240218
